FAERS Safety Report 24064605 (Version 1)
Quarter: 2024Q3

REPORT INFORMATION
  Report Type: Spontaneous
  Country: GB (occurrence: GB)
  Receive Date: 20240709
  Receipt Date: 20240709
  Transmission Date: 20241016
  Serious: Yes (Disabling, Other)
  Sender: ACCORD
  Company Number: None

PATIENT

DRUGS (3)
  1. AMLODIPINE [Suspect]
     Active Substance: AMLODIPINE BESYLATE
     Indication: Product used for unknown indication
  2. CANDESARTAN [Suspect]
     Active Substance: CANDESARTAN
     Indication: Product used for unknown indication
  3. AMLODIPINE [Suspect]
     Active Substance: AMLODIPINE BESYLATE
     Indication: Product used for unknown indication

REACTIONS (13)
  - Anxiety [Unknown]
  - Diarrhoea [Unknown]
  - Sensation of foreign body [Unknown]
  - Joint lock [Unknown]
  - Back pain [Unknown]
  - Abdominal pain upper [Unknown]
  - Pain in extremity [Unknown]
  - Abdominal discomfort [Unknown]
  - Tinnitus [Unknown]
  - Pain [Unknown]
  - Headache [Unknown]
  - Palpitations [Unknown]
  - Arthralgia [Unknown]
